FAERS Safety Report 18439534 (Version 1)
Quarter: 2020Q4

REPORT INFORMATION
  Report Type: Spontaneous
  Country: DE (occurrence: DE)
  Receive Date: 20201029
  Receipt Date: 20201029
  Transmission Date: 20210114
  Serious: Yes (Hospitalization, Disabling)
  Sender: FDA-Public Use
  Company Number: DE-TEVA-2020-DE-1842611

PATIENT
  Age: 51 Year
  Sex: Female

DRUGS (4)
  1. DULOXETINE. [Concomitant]
     Active Substance: DULOXETINE
     Indication: MAJOR DEPRESSION
     Route: 065
  2. LORAZEPAM. [Concomitant]
     Active Substance: LORAZEPAM
     Indication: MAJOR DEPRESSION
     Dosage: UNKNOWN DAILY DOSE
     Route: 065
  3. OLANZAPINE. [Suspect]
     Active Substance: OLANZAPINE
     Indication: SUSPECTED SUICIDE ATTEMPT
     Dosage: 1200 MILLIGRAM DAILY; 1200MG OF OLANZAPINE IN A SUSPECTED SUICIDE ATTEMPT
     Route: 065
  4. OLANZAPINE. [Suspect]
     Active Substance: OLANZAPINE
     Indication: MAJOR DEPRESSION
     Dosage: 5 MILLIGRAM DAILY; 5 MG/DAY TO TREAT MAJOR DEPRESSION
     Route: 065

REACTIONS (9)
  - Quadriparesis [Not Recovered/Not Resolved]
  - Toxicity to various agents [Not Recovered/Not Resolved]
  - Coma [Not Recovered/Not Resolved]
  - Basal ganglia haemorrhage [Not Recovered/Not Resolved]
  - Suspected suicide attempt [Not Recovered/Not Resolved]
  - Brain oedema [Not Recovered/Not Resolved]
  - Neuroleptic malignant syndrome [Not Recovered/Not Resolved]
  - Overdose [Not Recovered/Not Resolved]
  - Apallic syndrome [Not Recovered/Not Resolved]
